FAERS Safety Report 18861546 (Version 2)
Quarter: 2021Q2

REPORT INFORMATION
  Report Type: Report from Study
  Country: US (occurrence: US)
  Receive Date: 20210208
  Receipt Date: 20210424
  Transmission Date: 20210717
  Serious: Yes (Other)
  Sender: FDA-Public Use
  Company Number: NVSC2021US022781

PATIENT
  Age: 63 Year
  Sex: Female
  Weight: 84.4 kg

DRUGS (2)
  1. TEGRETOL [Suspect]
     Active Substance: CARBAMAZEPINE
     Dosage: UNK (800/400)
     Route: 048
  2. TEGRETOL [Suspect]
     Active Substance: CARBAMAZEPINE
     Indication: EPILEPSY
     Dosage: UNK
     Route: 065

REACTIONS (7)
  - Seizure [Unknown]
  - Visual impairment [Unknown]
  - Vitamin A deficiency eye disorder [Unknown]
  - Asthma [Not Recovered/Not Resolved]
  - Immunodeficiency [Unknown]
  - Pneumonia [Unknown]
  - Neurological symptom [Unknown]

NARRATIVE: CASE EVENT DATE: 202004
